FAERS Safety Report 14785430 (Version 1)
Quarter: 2018Q2

REPORT INFORMATION
  Report Type: Spontaneous
  Country: US (occurrence: US)
  Receive Date: 20180420
  Receipt Date: 20180420
  Transmission Date: 20180711
  Serious: No
  Sender: FDA-Public Use
  Company Number: US-ASTRAZENECA-2018SE52027

PATIENT

DRUGS (1)
  1. PRILOSEC OTC [Suspect]
     Active Substance: OMEPRAZOLE MAGNESIUM
     Indication: SENSATION OF FOREIGN BODY
     Dosage: UNKNOWN DOSE AND FREQUENCY FOR 8 DAYS
     Route: 048
     Dates: start: 20180327

REACTIONS (4)
  - Diarrhoea [Unknown]
  - Drug effect incomplete [Unknown]
  - Drug effective for unapproved indication [Unknown]
  - Drug effect delayed [Unknown]

NARRATIVE: CASE EVENT DATE: 20180331
